FAERS Safety Report 14789179 (Version 1)
Quarter: 2018Q2

REPORT INFORMATION
  Report Type: Report from Study
  Country: US (occurrence: US)
  Receive Date: 20180423
  Receipt Date: 20180423
  Transmission Date: 20180711
  Serious: Yes (Death)
  Sender: FDA-Public Use
  Company Number: PHEH2018US015055

PATIENT
  Sex: Female

DRUGS (3)
  1. ZARXIO [Suspect]
     Active Substance: FILGRASTIM-SNDZ
     Indication: BONE NEOPLASM
  2. ZARXIO [Suspect]
     Active Substance: FILGRASTIM-SNDZ
     Indication: AGRANULOCYTOSIS
  3. ZARXIO [Suspect]
     Active Substance: FILGRASTIM-SNDZ
     Indication: BREAST NEOPLASM
     Dosage: UNK
     Route: 065

REACTIONS (1)
  - Death [Fatal]
